FAERS Safety Report 5265737-3 (Version None)
Quarter: 2007Q1

REPORT INFORMATION
  Report Type: 
  Country: None (occurrence: None)
  Receive Date: 20061213
  Receipt Date: 20030224
  Transmission Date: 20070707
  Serious: Yes (Hospitalization)
  Sender: FDA-Public Use
  Company Number: 2003UW02491

PATIENT
  Age: 75 Year
  Sex: Female
  Weight: 73.9363 kg

DRUGS (2)
  1. TAMOXIFEN CITRATE [Suspect]
     Dosage: 20 MG PO
     Route: 048
     Dates: start: 20000101, end: 20030101
  2. SYNTHROID [Concomitant]

REACTIONS (4)
  - BACK PAIN [None]
  - DEEP VEIN THROMBOSIS [None]
  - UTERINE POLYP [None]
  - WEIGHT INCREASED [None]
